FAERS Safety Report 18502281 (Version 1)
Quarter: 2020Q4

REPORT INFORMATION
  Report Type: Other
  Country: US (occurrence: US)
  Receive Date: 20201113
  Receipt Date: 20201113
  Transmission Date: 20210114
  Serious: No
  Sender: FDA-Public Use
  Company Number: US-LEADIANT BIOSCIENCES INC-2020STPI000183

PATIENT
  Age: 24 Year
  Sex: Male

DRUGS (19)
  1. XIFAXAN [Concomitant]
     Active Substance: RIFAXIMIN
  2. FAMOTIDINE. [Concomitant]
     Active Substance: FAMOTIDINE
  3. TOBRAMYCIN. [Concomitant]
     Active Substance: TOBRAMYCIN
  4. MYFORTIC [Concomitant]
     Active Substance: MYCOPHENOLATE SODIUM
  5. MYLANTA [CALCIUM CARBONATE] [Concomitant]
     Active Substance: CALCIUM CARBONATE
  6. PROCYSBI [Concomitant]
     Active Substance: CYSTEAMINE BITARTRATE
  7. SULFACET [HYDROCORTISONE;SULFACETAMIDE SODIUM;SULFUR] [Concomitant]
  8. ACETAMINOPHEN. [Concomitant]
     Active Substance: ACETAMINOPHEN
  9. ATENOLOL. [Concomitant]
     Active Substance: ATENOLOL
  10. SYNTHROID [Concomitant]
     Active Substance: LEVOTHYROXINE SODIUM
  11. TACROLIMUS. [Concomitant]
     Active Substance: TACROLIMUS
  12. ATIVAN [Concomitant]
     Active Substance: LORAZEPAM
  13. MORPHINE SULFATE. [Concomitant]
     Active Substance: MORPHINE SULFATE
  14. CYSTARAN [Suspect]
     Active Substance: CYSTEAMINE HYDROCHLORIDE
     Indication: CYSTINOSIS
     Dosage: ONE DROP 5 TO 6 TIMES PER DAY
     Route: 047
     Dates: start: 20150903
  15. NORCO [Concomitant]
     Active Substance: ACETAMINOPHEN\HYDROCODONE BITARTRATE
  16. REGLAN [Concomitant]
     Active Substance: METOCLOPRAMIDE HYDROCHLORIDE
  17. PREDNISONE. [Concomitant]
     Active Substance: PREDNISONE
  18. MELATONIN [Concomitant]
     Active Substance: MELATONIN
  19. OMEPRAZOLE. [Concomitant]
     Active Substance: OMEPRAZOLE

REACTIONS (1)
  - Pneumonia aspiration [Not Recovered/Not Resolved]

NARRATIVE: CASE EVENT DATE: 202003
